FAERS Safety Report 4855643-8 (Version None)
Quarter: 2005Q4

REPORT INFORMATION
  Report Type: 
  Country: None (occurrence: None)
  Receive Date: 20051216
  Receipt Date: 20051208
  Transmission Date: 20060501
  Serious: Yes (Other)
  Sender: FDA-Public Use
  Company Number: 2005PK02396

PATIENT
  Sex: Male

DRUGS (1)
  1. SEROQUEL [Suspect]
     Dates: start: 20040101

REACTIONS (1)
  - ANGLE CLOSURE GLAUCOMA [None]
